FAERS Safety Report 9620058 (Version 2)
Quarter: 2013Q4

REPORT INFORMATION
  Report Type: Report from Study
  Country: US (occurrence: US)
  Receive Date: 20131014
  Receipt Date: 20131014
  Transmission Date: 20140711
  Serious: Yes (Death, Hospitalization)
  Sender: FDA-Public Use
  Company Number: PHHO2013US006700

PATIENT
  Age: 71 Year
  Sex: Male
  Weight: 102.49 kg

DRUGS (16)
  1. ACETYLSALICYLIC ACID [Suspect]
     Indication: PROPHYLAXIS
     Dosage: 81 MG, QD
     Route: 048
     Dates: start: 20050616, end: 20130808
  2. BLINDED ACZ885 [Suspect]
     Indication: CARDIOVASCULAR EVENT PROPHYLAXIS
     Dosage: DOUBLE BLINDED
     Route: 058
     Dates: start: 20120111, end: 20130726
  3. BLINDED NO TREATMENT RECEIVED [Suspect]
     Indication: CARDIOVASCULAR EVENT PROPHYLAXIS
     Dosage: DOUBLE BLINDED
     Route: 058
     Dates: start: 20120111, end: 20130726
  4. BLINDED PLACEBO [Suspect]
     Indication: CARDIOVASCULAR EVENT PROPHYLAXIS
     Dosage: DOUBLE BLINDED
     Route: 058
     Dates: start: 20120111, end: 20130726
  5. CAUMADIN [Suspect]
     Indication: PROPHYLAXIS
     Dosage: 5 MG, FRIDAY TO SUNDAY
     Route: 048
     Dates: start: 20130708, end: 20130804
  6. CAUMADIN [Suspect]
     Dosage: 7.5 MG, MONDAY TO THURSDAY
     Route: 048
     Dates: start: 20130708, end: 20130808
  7. PLAVIX [Suspect]
     Indication: PROPHYLAXIS
     Dosage: 75 MG, QD
     Route: 048
     Dates: start: 20100507, end: 20130808
  8. ISOSORBIDE MONONITE [Concomitant]
     Indication: ANGINA PECTORIS
     Dosage: 4 MG, QD
     Route: 048
     Dates: start: 20100507
  9. GLIMEPIRIDE [Concomitant]
     Indication: DIABETES MELLITUS
     Dosage: 2 MG, QD
     Route: 048
     Dates: start: 20111205, end: 20130808
  10. GLIMEPIRIDE [Concomitant]
     Indication: HYPERGLYCAEMIA
  11. ATENOLOL [Concomitant]
     Indication: HYPERTENSION
     Dosage: 100 MG, QD
     Route: 048
     Dates: start: 20100304, end: 20130808
  12. ATENOLOL [Concomitant]
     Indication: HYPERTENSION
  13. FUROSEMIDE [Concomitant]
     Indication: CARDIAC FAILURE CONGESTIVE
     Dosage: 20 MG, QD
     Route: 048
     Dates: start: 20100430, end: 20130808
  14. FUROSEMIDE [Concomitant]
     Indication: DIURETIC THERAPY
  15. WELCHOL [Concomitant]
     Indication: HYPERCHOLESTEROLAEMIA
     Dosage: 625 MG, BID
     Route: 048
     Dates: start: 20100304
  16. ZETIA [Concomitant]
     Indication: PROPHYLAXIS
     Dosage: 10 MG, QD
     Route: 048
     Dates: start: 20100507

REACTIONS (3)
  - Craniocerebral injury [Fatal]
  - Subdural haematoma [Fatal]
  - Deep vein thrombosis [Recovering/Resolving]
